FAERS Safety Report 6703826-4 (Version None)
Quarter: 2010Q2

REPORT INFORMATION
  Report Type: 
  Country: None (occurrence: None)
  Receive Date: 20100430
  Receipt Date: 20100420
  Transmission Date: 20101027
  Serious: Yes (Other)
  Sender: FDA-Public Use
  Company Number: JP-PFIZER INC-2010033337

PATIENT
  Age: 78 Year
  Sex: Male

DRUGS (1)
  1. VFEND [Suspect]
     Indication: BRONCHOPULMONARY ASPERGILLOSIS
     Dosage: 150 MG, 2X/DAY
     Route: 048
     Dates: start: 20091215

REACTIONS (1)
  - HALLUCINATION [None]
